FAERS Safety Report 10439417 (Version 1)
Quarter: 2014Q3

REPORT INFORMATION
  Report Type: Spontaneous
  Country: BR (occurrence: BR)
  Receive Date: 20140908
  Receipt Date: 20140908
  Transmission Date: 20150326
  Serious: Yes (Hospitalization, Other)
  Sender: FDA-Public Use
  Company Number: BR-ELI_LILLY_AND_COMPANY-BR201409001026

PATIENT
  Sex: Female
  Weight: 80 kg

DRUGS (5)
  1. CENTRUM                            /01536001/ [Concomitant]
     Dosage: 1 DF, EACH EVENING
     Route: 065
     Dates: start: 201306
  2. HUMULIN N [Suspect]
     Active Substance: INSULIN HUMAN
     Dosage: 10 IU, EACH EVENING
     Route: 058
  3. HUMULIN N [Suspect]
     Active Substance: INSULIN HUMAN
     Indication: DIABETES MELLITUS
     Dosage: 20 IU, EACH MORNING
     Route: 058
  4. VALSARTAN/HCT [Concomitant]
     Dosage: 1 DF, EACH MORNING
     Route: 065
     Dates: start: 201404
  5. COLLAGEN [Concomitant]
     Active Substance: COLLAGEN
     Dosage: 1 DF, QD
     Route: 065
     Dates: start: 201408

REACTIONS (7)
  - Retinal detachment [Not Recovered/Not Resolved]
  - Visual acuity reduced [Not Recovered/Not Resolved]
  - Post procedural complication [Unknown]
  - Fall [Unknown]
  - Decreased appetite [Not Recovered/Not Resolved]
  - Injection site nodule [Recovered/Resolved]
  - Blindness unilateral [Not Recovered/Not Resolved]

NARRATIVE: CASE EVENT DATE: 2013
